FAERS Safety Report 25484558 (Version 1)
Quarter: 2025Q2

REPORT INFORMATION
  Report Type: Spontaneous
  Country: US (occurrence: None)
  Receive Date: 20250627
  Receipt Date: 20250627
  Transmission Date: 20250716
  Serious: No
  Sender: FDA-CTU
  Company Number: None

PATIENT

DRUGS (2)
  1. ASMANEX [Suspect]
     Active Substance: MOMETASONE FUROATE
  2. PULMICORT TURBUHALER [Suspect]
     Active Substance: BUDESONIDE

REACTIONS (1)
  - Chest pain [None]

NARRATIVE: CASE EVENT DATE: 20250626
